FAERS Safety Report 12024456 (Version 1)
Quarter: 2016Q1

REPORT INFORMATION
  Report Type: Report from Study
  Country: US (occurrence: US)
  Receive Date: 20160206
  Receipt Date: 20160206
  Transmission Date: 20160526
  Serious: No
  Sender: FDA-Public Use
  Company Number: US-ABBVIE-15K-163-1479941-00

PATIENT
  Sex: Female

DRUGS (1)
  1. HUMIRA [Suspect]
     Active Substance: ADALIMUMAB
     Indication: PSORIATIC ARTHROPATHY
     Route: 058
     Dates: start: 20150708, end: 20150923

REACTIONS (3)
  - Sinus disorder [Unknown]
  - Drug ineffective [Unknown]
  - Migraine [Recovered/Resolved with Sequelae]

NARRATIVE: CASE EVENT DATE: 2015
